FAERS Safety Report 4286770-4 (Version None)
Quarter: 2004Q1

REPORT INFORMATION
  Report Type: 
  Country: None (occurrence: None)
  Receive Date: 20040206
  Receipt Date: 20011023
  Transmission Date: 20041129
  Serious: Yes (Hospitalization)
  Sender: FDA-Public Use
  Company Number: FR-ROCHE-300284

PATIENT
  Age: 45 Year
  Sex: Female
  Weight: 75 kg

DRUGS (18)
  1. DACLIZUMAB [Suspect]
     Route: 042
     Dates: start: 20011018, end: 20011018
  2. MYCOPHENOLATE MOFETIL [Suspect]
     Route: 048
     Dates: start: 20011018
  3. MYCOPHENOLATE MOFETIL [Suspect]
     Route: 048
     Dates: start: 20011222
  4. NEORAL [Suspect]
     Route: 065
     Dates: start: 20020308
  5. NEORAL [Suspect]
     Route: 065
     Dates: start: 20011018, end: 20011123
  6. SOLU-MEDROL [Concomitant]
     Dates: start: 20011018, end: 20011213
  7. PREDNISONE [Concomitant]
     Dates: start: 20011112, end: 20020117
  8. OFLOCET [Concomitant]
     Dates: start: 20011115, end: 20011128
  9. ROCEPHIN [Concomitant]
     Dates: start: 20011117, end: 20011128
  10. NITROFURANTOINE [Concomitant]
     Dates: start: 20011214, end: 20011223
  11. NEURONTIN [Concomitant]
  12. ALEPSAL [Concomitant]
  13. CACIT [Concomitant]
  14. AMLOR [Concomitant]
  15. TAHOR [Concomitant]
     Dates: start: 20011109
  16. EUPRESSYL [Concomitant]
  17. MOPRAL [Concomitant]
  18. CORTANCYL [Concomitant]
     Dates: start: 20020225

REACTIONS (6)
  - CYTOMEGALOVIRUS INFECTION [None]
  - GASTROENTERITIS [None]
  - GOUTY ARTHRITIS [None]
  - HYPOTENSION [None]
  - PYELONEPHRITIS ACUTE [None]
  - PYREXIA [None]
